FAERS Safety Report 9945098 (Version 1)
Quarter: 2014Q1

REPORT INFORMATION
  Report Type: Report from Study
  Country: US (occurrence: US)
  Receive Date: 20140303
  Receipt Date: 20140303
  Transmission Date: 20141002
  Serious: No
  Sender: FDA-Public Use
  Company Number: US-ABBVIE-13P-163-1051482-00

PATIENT
  Age: 64 Year
  Sex: Female

DRUGS (5)
  1. HUMIRA [Suspect]
     Indication: RHEUMATOID ARTHRITIS
     Dates: start: 20130117
  2. FUROSEMIDE [Concomitant]
     Indication: OEDEMA
     Dosage: IN AM
  3. CELEXA [Concomitant]
     Indication: DEPRESSION
     Dosage: 40 MG DAILY
  4. TRAMADOL [Concomitant]
     Indication: PAIN
     Dosage: 50 MG HOUR OF SLEEP, AS NEEDED
  5. MULTIPLE VITAMINS [Concomitant]
     Indication: PRODUCT USED FOR UNKNOWN INDICATION

REACTIONS (3)
  - Device malfunction [Recovered/Resolved]
  - Incorrect dose administered [Recovered/Resolved]
  - Injection site haemorrhage [Unknown]
